FAERS Safety Report 13892300 (Version 1)
Quarter: 2017Q3

REPORT INFORMATION
  Report Type: Spontaneous
  Country: US (occurrence: US)
  Receive Date: 20170822
  Receipt Date: 20170822
  Transmission Date: 20171127
  Serious: Yes (Hospitalization, Other)
  Sender: FDA-Public Use
  Company Number: US-TARO-2017TAR00677

PATIENT
  Sex: Female
  Weight: 56.24 kg

DRUGS (2)
  1. NYSTATIN ORAL SUSPENSION USP 100,000 UNITS/ML [Suspect]
     Active Substance: NYSTATIN
     Indication: CANDIDA INFECTION
     Dosage: 5 ML, 4X/DAY SWISH AND SWALLOW
     Route: 048
     Dates: start: 20170516, end: 20170519
  2. NYSTATIN ORAL SUSPENSION USP 100,000 UNITS/ML [Suspect]
     Active Substance: NYSTATIN
     Dosage: 5 ML, 4X/DAY SWISH AND SPIT
     Route: 048
     Dates: start: 20170519, end: 201705

REACTIONS (40)
  - Burning sensation [Not Recovered/Not Resolved]
  - Hypersensitivity [Unknown]
  - Pharyngitis [Unknown]
  - Eye pain [Unknown]
  - Palpitations [Unknown]
  - Dyspepsia [Not Recovered/Not Resolved]
  - Dry mouth [Unknown]
  - Stress [Unknown]
  - Malaise [Unknown]
  - Bone pain [Not Recovered/Not Resolved]
  - Nervous system disorder [Not Recovered/Not Resolved]
  - Mucosal dryness [Not Recovered/Not Resolved]
  - Flushing [Not Recovered/Not Resolved]
  - Fatigue [Unknown]
  - Gastrooesophageal reflux disease [Not Recovered/Not Resolved]
  - Hypertension [Not Recovered/Not Resolved]
  - Tooth injury [Unknown]
  - Depression [Not Recovered/Not Resolved]
  - Vaginal haemorrhage [Unknown]
  - Oropharyngeal pain [Unknown]
  - Vulvovaginal mycotic infection [Unknown]
  - Weight decreased [Unknown]
  - Malabsorption [Not Recovered/Not Resolved]
  - Abnormal faeces [Not Recovered/Not Resolved]
  - Rash [Not Recovered/Not Resolved]
  - Anxiety [Not Recovered/Not Resolved]
  - Emotional distress [Not Recovered/Not Resolved]
  - Urinary tract disorder [Not Recovered/Not Resolved]
  - Bladder disorder [Not Recovered/Not Resolved]
  - Lipoma [Not Recovered/Not Resolved]
  - Chest discomfort [Unknown]
  - Dyskinesia [Not Recovered/Not Resolved]
  - Tinnitus [Not Recovered/Not Resolved]
  - Throat irritation [Recovered/Resolved]
  - Dry throat [Not Recovered/Not Resolved]
  - Skin exfoliation [Not Recovered/Not Resolved]
  - Orgasm abnormal [Not Recovered/Not Resolved]
  - Sinus pain [Not Recovered/Not Resolved]
  - Oral discomfort [Recovered/Resolved]
  - Nervousness [Unknown]

NARRATIVE: CASE EVENT DATE: 2017
